FAERS Safety Report 11884128 (Version 1)
Quarter: 2016Q1

REPORT INFORMATION
  Report Type: Spontaneous
  Country: US (occurrence: US)
  Receive Date: 20160103
  Receipt Date: 20160103
  Transmission Date: 20160526
  Serious: Yes (Other)
  Sender: FDA-Public Use
  Company Number: US-BEH-2015057245

PATIENT
  Sex: Female
  Weight: 89 kg

DRUGS (30)
  1. AUGMENTIN [Concomitant]
     Active Substance: AMOXICILLIN\CLAVULANATE POTASSIUM
  2. POTASSIUM CHLORIDE. [Concomitant]
     Active Substance: POTASSIUM CHLORIDE
  3. VALIUM [Concomitant]
     Active Substance: DIAZEPAM
  4. DIPHENHYDRAMINE. [Concomitant]
     Active Substance: DIPHENHYDRAMINE
  5. LOSARTAN. [Concomitant]
     Active Substance: LOSARTAN
  6. LEVOTHYROXINE. [Concomitant]
     Active Substance: LEVOTHYROXINE
  7. LIDOCAINE/PRILOCAINE [Concomitant]
  8. FUROSEMIDE. [Concomitant]
     Active Substance: FUROSEMIDE
  9. HYDROCODONE BITARTRATE AND ACETAMINOPHEN [Concomitant]
     Active Substance: ACETAMINOPHEN\HYDROCODONE BITARTRATE
  10. VITAMIN D3 [Concomitant]
     Active Substance: CHOLECALCIFEROL
  11. HIZENTRA [Suspect]
     Active Substance: HUMAN IMMUNOGLOBULIN G
     Indication: IMMUNODEFICIENCY COMMON VARIABLE
     Dosage: 4 G 20 ML VIALS
     Route: 058
  12. VITAMIN C [Concomitant]
     Active Substance: ASCORBIC ACID
  13. OXYGEN. [Concomitant]
     Active Substance: OXYGEN
  14. NEURONTIN [Concomitant]
     Active Substance: GABAPENTIN
  15. EPIPEN [Concomitant]
     Active Substance: EPINEPHRINE
  16. FLUTICASONE [Concomitant]
     Active Substance: FLUTICASONE\FLUTICASONE PROPIONATE
  17. SYMBICORT [Concomitant]
     Active Substance: BUDESONIDE\FORMOTEROL FUMARATE DIHYDRATE
  18. NEXIUM [Concomitant]
     Active Substance: ESOMEPRAZOLE MAGNESIUM
  19. FORTICAL [Concomitant]
     Active Substance: CALCITONIN SALMON
  20. CRESTOR [Concomitant]
     Active Substance: ROSUVASTATIN CALCIUM
  21. PROBIOTIC [Concomitant]
     Active Substance: PROBIOTICS NOS
  22. FIBER [Concomitant]
     Active Substance: PSYLLIUM HUSK
  23. FISH OIL [Concomitant]
     Active Substance: FISH OIL
  24. ONE A DAY [Concomitant]
  25. ACETAMINOPHEN. [Concomitant]
     Active Substance: ACETAMINOPHEN
  26. PLAQUENIL [Concomitant]
     Active Substance: HYDROXYCHLOROQUINE SULFATE
  27. MAGNESIUM [Concomitant]
     Active Substance: MAGNESIUM
  28. COUMADIN [Concomitant]
     Active Substance: WARFARIN SODIUM
  29. PROAIR HFA [Concomitant]
     Active Substance: ALBUTEROL SULFATE
  30. SPIRONOLACTONE. [Concomitant]
     Active Substance: SPIRONOLACTONE

REACTIONS (2)
  - Cellulitis [Unknown]
  - Surgery [Unknown]
